FAERS Safety Report 10674027 (Version 1)
Quarter: 2014Q4

REPORT INFORMATION
  Report Type: Spontaneous
  Country: US (occurrence: None)
  Receive Date: 20141223
  Receipt Date: 20141223
  Transmission Date: 20150529
  Serious: No
  Sender: FDA-Public Use
  Company Number: None

PATIENT
  Age: 71 Year
  Sex: Male

DRUGS (1)
  1. TASIGNA [Suspect]
     Active Substance: NILOTINIB
     Dosage: 150 MG TAKE 2 BID BID ORAL
     Route: 048
     Dates: start: 20140827

REACTIONS (3)
  - Abdominal discomfort [None]
  - Myocardial infarction [None]
  - Intracranial aneurysm [None]

NARRATIVE: CASE EVENT DATE: 20141222
